FAERS Safety Report 8359402-3 (Version None)
Quarter: 2012Q2

REPORT INFORMATION
  Report Type: 
  Country: None (occurrence: None)
  Receive Date: 20120514
  Receipt Date: 20120514
  Transmission Date: 20120825
  Serious: Yes (Death)
  Sender: FDA-Public Use
  Company Number: None

PATIENT
  Age: 72 Year
  Sex: Female

DRUGS (1)
  1. ACTOS [Suspect]
     Indication: TYPE 2 DIABETES MELLITUS
     Dosage: 30MG DAILY PO
     Route: 048

REACTIONS (6)
  - DYSPNOEA [None]
  - RIGHT VENTRICULAR FAILURE [None]
  - ASCITES [None]
  - COR PULMONALE [None]
  - PLEURAL EFFUSION [None]
  - PNEUMOTHORAX [None]
